FAERS Safety Report 18088878 (Version 1)
Quarter: 2020Q3

REPORT INFORMATION
  Report Type: Spontaneous
  Country: US (occurrence: US)
  Receive Date: 20200729
  Receipt Date: 20200729
  Transmission Date: 20201103
  Serious: No
  Sender: FDA-Public Use
  Company Number: US-009507513-2007USA007415

PATIENT
  Age: 62 Year
  Sex: Female

DRUGS (1)
  1. INTRON A [Suspect]
     Active Substance: INTERFERON ALFA-2B
     Indication: PLEURAL MESOTHELIOMA
     Dosage: STRENGTH: 25 MILLION UNITS (MU); 0.15 ML, DAILY, SUBCUTANEOUS
     Route: 058
     Dates: start: 20200717

REACTIONS (1)
  - Product prescribing issue [Unknown]

NARRATIVE: CASE EVENT DATE: 20200717
